FAERS Safety Report 8869649 (Version 1)
Quarter: 2012Q4

REPORT INFORMATION
  Report Type: Report from Study
  Country: US (occurrence: US)
  Receive Date: 20121028
  Receipt Date: 20121028
  Transmission Date: 20130627
  Serious: Yes (Other)
  Sender: FDA-Public Use
  Company Number: US-JNJFOC-20121009792

PATIENT
  Age: 65 None
  Sex: Female
  Weight: 63.5 kg

DRUGS (7)
  1. REMICADE [Suspect]
     Indication: ARTHRITIS
     Route: 042
  2. REMICADE [Suspect]
     Indication: PSORIASIS
     Route: 042
  3. HUMIRA [Suspect]
     Indication: ARTHRITIS
     Route: 042
  4. HUMIRA [Suspect]
     Indication: PSORIASIS
     Route: 042
  5. SERTRALINE [Concomitant]
     Indication: NERVOUSNESS
     Route: 048
  6. ALPRAZOLAM [Concomitant]
     Indication: NERVOUSNESS
     Route: 048
  7. METHOTREXATE [Concomitant]
     Indication: ARTHRITIS
     Route: 048

REACTIONS (4)
  - Cystitis [Recovered/Resolved]
  - Incontinence [Not Recovered/Not Resolved]
  - Headache [Not Recovered/Not Resolved]
  - Arthritis [Unknown]
